FAERS Safety Report 6038804-4 (Version None)
Quarter: 2009Q1

REPORT INFORMATION
  Report Type: 
  Country: None (occurrence: None)
  Receive Date: 20090115
  Receipt Date: 20090105
  Transmission Date: 20090719
  Serious: Yes (Death)
  Sender: FDA-Public Use
  Company Number: DE-AVENTIS-200910195US

PATIENT
  Age: 76 Year
  Sex: Male

DRUGS (5)
  1. GLIBENCLAMIDE [Suspect]
     Dosage: DOSE: UNK
     Dates: end: 20070101
  2. METFORMIN HYDROCHLORIDE [Suspect]
     Dosage: DOSE: UNK
     Dates: end: 20070101
  3. SERTRALINE [Suspect]
     Dosage: DOSE: UNK
     Dates: end: 20070101
  4. TRAMADOL HCL [Suspect]
     Dosage: DOSE: UNK
     Dates: end: 20070101
  5. LEVODOPA [Suspect]
     Dosage: DOSE: UNK
     Dates: end: 20070101

REACTIONS (2)
  - COMPLETED SUICIDE [None]
  - INTENTIONAL OVERDOSE [None]
